FAERS Safety Report 5358294-4 (Version None)
Quarter: 2007Q2

REPORT INFORMATION
  Report Type: 
  Country: None (occurrence: None)
  Receive Date: 20070614
  Receipt Date: 20070614
  Transmission Date: 20071010
  Serious: Yes (Hospitalization)
  Sender: FDA-Public Use
  Company Number: None

PATIENT
  Sex: Female
  Weight: 51 kg

DRUGS (1)
  1. VANCOMYCIN HYDROCHLORIDE [Suspect]
     Indication: INFECTION
     Dosage: 1 GRAM EVERY 12 HOURS IV
     Route: 042
     Dates: start: 20070607, end: 20070608

REACTIONS (2)
  - DYSPNOEA [None]
  - SWELLING FACE [None]
